FAERS Safety Report 9412144 (Version 1)
Quarter: 2013Q3

REPORT INFORMATION
  Report Type: Report from Study
  Country: FR (occurrence: FR)
  Receive Date: 20130722
  Receipt Date: 20130722
  Transmission Date: 20140515
  Serious: Yes (Hospitalization, Other)
  Sender: FDA-Public Use
  Company Number: FR-NOVOPROD-383178

PATIENT
  Age: 56 Year
  Sex: Female
  Weight: 51 kg

DRUGS (10)
  1. LIRAGLUTIDE FLEXPEN [Suspect]
     Indication: TYPE 2 DIABETES MELLITUS
     Dosage: UNK
     Route: 065
     Dates: start: 20101013, end: 20120307
  2. PEGASYS [Concomitant]
     Dosage: 180 MG, QD
     Route: 065
  3. COPEGUS [Concomitant]
     Dosage: 800 MG, QD
     Route: 065
  4. INCIVO [Concomitant]
     Dosage: 2250 MG, QD
     Route: 065
  5. REVOLADE [Concomitant]
     Dosage: 25 MG, QD
     Route: 065
  6. STAGID [Concomitant]
     Dosage: 2100 MG, QD
     Route: 065
  7. TANGANIL                           /00129601/ [Concomitant]
     Dosage: 1500 MG, QD
     Route: 065
  8. AVLOCARDYL                         /00030001/ [Concomitant]
     Dosage: 40 MG, QD
     Route: 065
  9. INEXIUM                            /01479302/ [Concomitant]
     Dosage: 40 MG, QD
     Route: 065
  10. DAFALGAN [Concomitant]
     Dosage: ON DEMAND
     Route: 065

REACTIONS (1)
  - General physical health deterioration [Recovered/Resolved]
